FAERS Safety Report 21770497 (Version 5)
Quarter: 2023Q4

REPORT INFORMATION
  Report Type: Report from Study
  Country: CL (occurrence: CL)
  Receive Date: 20221223
  Receipt Date: 20231026
  Transmission Date: 20240110
  Serious: Yes (Hospitalization, Other)
  Sender: FDA-Public Use
  Company Number: CL-002147023-NVSC2022CL263397

PATIENT
  Age: 52 Year
  Sex: Male

DRUGS (21)
  1. MEKINIST [Suspect]
     Active Substance: TRAMETINIB DIMETHYL SULFOXIDE
     Indication: Colorectal cancer metastatic
     Dosage: 1.5 MG, QD
     Route: 048
     Dates: start: 20220715, end: 20230724
  2. MEKINIST [Suspect]
     Active Substance: TRAMETINIB DIMETHYL SULFOXIDE
     Dosage: 1 MG (VS. 1.5 MG)
     Route: 048
     Dates: start: 20220829, end: 20221116
  3. NIVOLUMAB [Suspect]
     Active Substance: NIVOLUMAB
     Indication: Colorectal cancer metastatic
     Dosage: 348 MG, Q4W
     Route: 042
     Dates: start: 20220715
  4. NIVOLUMAB [Suspect]
     Active Substance: NIVOLUMAB
     Dosage: 345 MG
     Route: 042
     Dates: start: 20221110
  5. IPILIMUMAB [Suspect]
     Active Substance: IPILIMUMAB
     Indication: Colorectal cancer metastatic
     Dosage: 58 MG, EVERY 8 WEEKS
     Route: 042
     Dates: start: 20220715
  6. IPILIMUMAB [Suspect]
     Active Substance: IPILIMUMAB
     Dosage: 58.7 MG
     Route: 042
     Dates: start: 20221110
  7. SIMETHICONE (DIMETHICONE) [Concomitant]
     Active Substance: DIMETHICONE
     Indication: Abdominal pain
     Dosage: 104 MG
     Route: 048
     Dates: start: 20220808
  8. CHLORDIAZEPOXIDE [Concomitant]
     Active Substance: CHLORDIAZEPOXIDE
     Indication: Abdominal pain
     Dosage: 5 MG
     Route: 048
     Dates: start: 20220808
  9. BUPRENORPHINE [Concomitant]
     Active Substance: BUPRENORPHINE
     Indication: Cancer pain
     Dosage: 1.5 UNITS
     Route: 062
     Dates: start: 20220808
  10. LOPERAMIDE [Concomitant]
     Active Substance: LOPERAMIDE
     Indication: Diarrhoea
     Dosage: 2 G
     Route: 048
     Dates: start: 20221004
  11. LEVOTHYROXINE [Concomitant]
     Active Substance: LEVOTHYROXINE
     Indication: Blood thyroid stimulating hormone increased
     Dosage: 50 UG
     Route: 048
     Dates: start: 20221014
  12. DOMPERIDONE [Concomitant]
     Active Substance: DOMPERIDONE
     Indication: Flatulence
     Dosage: 30 MG
     Route: 048
     Dates: start: 20220805
  13. DOMPERIDONE [Concomitant]
     Active Substance: DOMPERIDONE
     Indication: Vomiting
  14. OMEPRAZOLE [Concomitant]
     Active Substance: OMEPRAZOLE
     Indication: Abdominal pain
     Dosage: 20 MG
     Route: 048
     Dates: start: 20220808
  15. OMEPRAZOLE [Concomitant]
     Active Substance: OMEPRAZOLE
     Indication: Nausea
     Dosage: 40 MG
     Route: 048
     Dates: start: 20221116, end: 20221116
  16. OMEPRAZOLE [Concomitant]
     Active Substance: OMEPRAZOLE
     Indication: Vomiting
  17. UREA [Concomitant]
     Active Substance: UREA
     Indication: Xerosis
     Dosage: 2 UNITS
     Route: 061
     Dates: start: 20220811
  18. SALINE [Concomitant]
     Active Substance: SODIUM CHLORIDE
     Indication: Nausea
     Dosage: 8 MG
     Route: 042
     Dates: start: 20221116, end: 20221116
  19. SALINE [Concomitant]
     Active Substance: SODIUM CHLORIDE
     Indication: Vomiting
  20. ONDANSETRON [Concomitant]
     Active Substance: ONDANSETRON
     Indication: Nausea
     Dosage: 8 MG
     Route: 042
     Dates: start: 20221116, end: 20221116
  21. ONDANSETRON [Concomitant]
     Active Substance: ONDANSETRON
     Indication: Vomiting

REACTIONS (1)
  - Hyponatraemic encephalopathy [Recovered/Resolved]

NARRATIVE: CASE EVENT DATE: 20221117
